FAERS Safety Report 6776241-5 (Version None)
Quarter: 2010Q2

REPORT INFORMATION
  Report Type: 
  Country: None (occurrence: None)
  Receive Date: 20100617
  Receipt Date: 20100609
  Transmission Date: 20101027
  Serious: Yes (Other)
  Sender: FDA-Public Use
  Company Number: US-AMGEN-QUU417508

PATIENT
  Sex: Female
  Weight: 51.3 kg

DRUGS (10)
  1. NPLATE [Suspect]
     Indication: IDIOPATHIC THROMBOCYTOPENIC PURPURA
     Route: 058
     Dates: start: 20100208
  2. CORTICOSTEROIDS [Concomitant]
  3. RITUXIMAB [Concomitant]
     Route: 042
     Dates: start: 19950101
  4. DEXAMETHASONE SODIUM PHOSPHATE [Concomitant]
     Route: 042
     Dates: start: 20100219, end: 20100219
  5. DIPHENHYDRAMINE HYDROCHLORIDE [Concomitant]
     Dates: start: 20100219, end: 20100219
  6. ACETAMINOPHEN [Concomitant]
     Route: 048
  7. PREDNISONE [Concomitant]
     Route: 048
  8. SYNTHROID [Concomitant]
     Route: 048
  9. COZAAR [Concomitant]
     Route: 048
  10. NEXIUM [Concomitant]
     Route: 048

REACTIONS (6)
  - ECCHYMOSIS [None]
  - FATIGUE [None]
  - INCREASED TENDENCY TO BRUISE [None]
  - JOINT RANGE OF MOTION DECREASED [None]
  - MUSCULOSKELETAL PAIN [None]
  - PYREXIA [None]
